FAERS Safety Report 4408266-9 (Version None)
Quarter: 2004Q3

REPORT INFORMATION
  Report Type: 
  Country: None (occurrence: None)
  Receive Date: 20040722
  Receipt Date: 20040706
  Transmission Date: 20050211
  Serious: Yes (Life-Threatening, Hospitalization)
  Sender: FDA-Public Use
  Company Number: DSA_24657_2004

PATIENT
  Age: 89 Year
  Sex: Female

DRUGS (12)
  1. ENALAPRIL MALEATE [Suspect]
     Indication: HYPERTENSION
     Dosage: 5 MG QD PO
     Route: 048
     Dates: end: 20040306
  2. LISINOPRIL [Suspect]
     Indication: HYPERTENSION
     Dosage: 5 MG, PO
     Route: 048
     Dates: start: 20040306, end: 20040311
  3. TRIAMTERENE AND HYDROCHLOROTHIAZIDE [Concomitant]
  4. ASPIRIN [Concomitant]
  5. VIGATOLETTEN ^BAYER^ [Concomitant]
  6. NOVALGIN [Concomitant]
  7. FENTANYL [Concomitant]
  8. LACTULOSE [Concomitant]
  9. LEVOTHYROXINE SODIUM [Concomitant]
  10. NITRAZEPAM [Concomitant]
  11. PREDNISOLONE [Concomitant]
  12. METOPROLOL TARTRATE [Concomitant]

REACTIONS (7)
  - ANTINUCLEAR ANTIBODY POSITIVE [None]
  - BLOOD IMMUNOGLOBULIN A INCREASED [None]
  - CHOLANGITIS [None]
  - CHOLELITHIASIS [None]
  - HEPATITIS CHOLESTATIC [None]
  - HEPATOTOXICITY [None]
  - TACHYCARDIA [None]
